FAERS Safety Report 4647176-9 (Version None)
Quarter: 2005Q2

REPORT INFORMATION
  Report Type: 
  Country: None (occurrence: None)
  Receive Date: 20050428
  Receipt Date: 20000524
  Transmission Date: 20051028
  Serious: Yes (Disabling)
  Sender: FDA-Public Use
  Company Number: JP-ABBOTT-00P-087-0090416-00

PATIENT
  Sex: Female

DRUGS (6)
  1. KLARICID [Suspect]
     Indication: ATYPICAL MYCOBACTERIAL INFECTION
     Route: 048
     Dates: start: 19990205, end: 20000127
  2. ETHAMBUTOL HCL [Suspect]
     Indication: ATYPICAL MYCOBACTERIAL INFECTION
     Route: 048
     Dates: start: 19990205, end: 19990812
  3. RIFAMPICIN [Concomitant]
     Indication: ATYPICAL MYCOBACTERIAL INFECTION
     Route: 048
     Dates: start: 19990205, end: 20000127
  4. STREPTOMYCIN SULFATE [Concomitant]
     Indication: ATYPICAL MYCOBACTERIAL INFECTION
     Route: 030
     Dates: start: 19990205, end: 19990211
  5. IMIDAPRIL HYDROCHLORIDE [Concomitant]
     Indication: HYPERTENSION
     Route: 048
     Dates: start: 19930101
  6. AMLODIPINE [Concomitant]
     Indication: HYPERTENSION
     Dates: start: 19991007

REACTIONS (16)
  - DIZZINESS [None]
  - DYSGEUSIA [None]
  - HEADACHE [None]
  - HYPERACUSIS [None]
  - HYPOAESTHESIA [None]
  - INSOMNIA [None]
  - MUSCLE SPASMS [None]
  - MYELOPATHY [None]
  - NEURITIS [None]
  - NEUROSIS [None]
  - OEDEMA PERIPHERAL [None]
  - PAIN [None]
  - TINNITUS [None]
  - UNEVALUABLE EVENT [None]
  - VISUAL DISTURBANCE [None]
  - WEIGHT DECREASED [None]
